FAERS Safety Report 6327999-0 (Version None)
Quarter: 2009Q3

REPORT INFORMATION
  Report Type: 
  Country: None (occurrence: None)
  Receive Date: 20090825
  Receipt Date: 20081008
  Transmission Date: 20100115
  Serious: No
  Sender: FDA-Public Use
  Company Number: US-ABBOTT-08P-163-0480515-00

PATIENT
  Age: 43 Year
  Sex: Female

DRUGS (1)
  1. SYNTHROID [Suspect]
     Indication: AUTOIMMUNE THYROIDITIS
     Route: 048

REACTIONS (6)
  - ALOPECIA [None]
  - BREAST DISCOMFORT [None]
  - BREAST SWELLING [None]
  - METRORRHAGIA [None]
  - MOOD SWINGS [None]
  - SWELLING FACE [None]
